FAERS Safety Report 11155847 (Version 1)
Quarter: 2015Q2

REPORT INFORMATION
  Report Type: Spontaneous
  Country: US (occurrence: None)
  Receive Date: 20150529
  Receipt Date: 20150529
  Transmission Date: 20150821
  Serious: No
  Sender: FDA-Public Use
  Company Number: None

PATIENT
  Age: 52 Year
  Sex: Female

DRUGS (6)
  1. AMPYRA [Suspect]
     Active Substance: DALFAMPRIDINE
     Indication: MULTIPLE SCLEROSIS
     Route: 048
     Dates: start: 201302
  2. RITUXIMAB [Concomitant]
     Active Substance: RITUXIMAB
  3. MODAFINIL. [Concomitant]
     Active Substance: MODAFINIL
  4. TIZANIDINE (TIZANIDINE) [Concomitant]
     Active Substance: TIZANIDINE
  5. OXYBUTYNIN [Concomitant]
     Active Substance: OXYBUTYNIN
  6. HC CREAM [Concomitant]

REACTIONS (1)
  - Laboratory test abnormal [None]

NARRATIVE: CASE EVENT DATE: 20150203
